FAERS Safety Report 12988043 (Version 2)
Quarter: 2017Q1

REPORT INFORMATION
  Report Type: Spontaneous
  Country: GB (occurrence: GB)
  Receive Date: 20161130
  Receipt Date: 20170124
  Transmission Date: 20170428
  Serious: Yes (Hospitalization, Other)
  Sender: FDA-Public Use
  Company Number: GB-PFIZER INC-2016553199

PATIENT
  Age: 64 Year

DRUGS (4)
  1. MEMANTINE HYDROCHLORIDE. [Suspect]
     Active Substance: MEMANTINE HYDROCHLORIDE
     Indication: MENTAL DISORDER
     Dosage: UNK
  2. LORAZEPAM. [Suspect]
     Active Substance: LORAZEPAM
     Indication: MENTAL DISORDER
     Dosage: UNK
  3. VALSARTAN/AMLODIPINO [Interacting]
     Active Substance: AMLODIPINE\VALSARTAN
     Indication: MENTAL DISORDER
     Dosage: UNK
  4. LEVODOPA [Interacting]
     Active Substance: LEVODOPA
     Indication: MENTAL DISORDER
     Dosage: UNK

REACTIONS (6)
  - Sinus bradycardia [Recovered/Resolved]
  - Coma [Unknown]
  - Hypothermia [Recovered/Resolved]
  - Electrocardiogram QT prolonged [Recovered/Resolved]
  - Drug interaction [Recovered/Resolved]
  - Electrocardiogram J wave abnormal [Recovered/Resolved]
